FAERS Safety Report 6197064-4 (Version None)
Quarter: 2009Q2

REPORT INFORMATION
  Report Type: 
  Country: None (occurrence: None)
  Receive Date: 20090518
  Receipt Date: 20090518
  Transmission Date: 20091009
  Serious: Yes (Hospitalization)
  Sender: FDA-Public Use
  Company Number: None

PATIENT
  Age: 57 Year
  Sex: Male
  Weight: 110 kg

DRUGS (1)
  1. VANCOMYCIN HCL [Suspect]
     Dosage: 1 GM EVERY DAY IV
     Route: 042
     Dates: start: 20090412, end: 20090515

REACTIONS (2)
  - RASH [None]
  - RESPIRATORY DISORDER [None]
